FAERS Safety Report 8850192 (Version 3)
Quarter: 2013Q1

REPORT INFORMATION
  Report Type: Report from Study
  Country: DE (occurrence: DE)
  Receive Date: 20121019
  Receipt Date: 20130321
  Transmission Date: 20140127
  Serious: Yes (Hospitalization)
  Sender: FDA-Public Use
  Company Number: DE-PFIZER INC-2012238563

PATIENT
  Age: 65 Year
  Sex: Male
  Weight: 58.2 kg

DRUGS (7)
  1. IRINOTECAN HCL [Suspect]
     Indication: COLORECTAL CANCER METASTATIC
     Dosage: 290 MG/M2, UNK
     Route: 042
     Dates: start: 20120822
  2. FLUOROURACIL [Suspect]
     Indication: COLORECTAL CANCER METASTATIC
     Dosage: 3200 MG/M2, UNK
     Route: 042
     Dates: start: 20120822
  3. LEUCOVORIN [Suspect]
     Indication: COLORECTAL CANCER METASTATIC
     Dosage: 200 MG/M2, UNK
     Route: 042
     Dates: start: 20120822
  4. BEVACIZUMAB [Suspect]
     Indication: COLORECTAL CANCER METASTATIC
     Dosage: 5 MG/KG, UNK
     Route: 042
     Dates: start: 20120822
  5. OXALIPLATIN [Suspect]
     Indication: COLORECTAL CANCER METASTATIC
     Dosage: 85 MG/M2, UNK
     Route: 042
     Dates: start: 20120822
  6. FENTANYL CITRATE [Concomitant]
     Indication: BACK PAIN
     Dosage: 75 UG (DAY 3)
     Route: 062
  7. ISONIAZIDE [Concomitant]
     Dosage: 300 MG, 1X/DAY
     Dates: start: 20120822

REACTIONS (6)
  - Hypoaesthesia oral [Recovering/Resolving]
  - Gingival bleeding [Recovering/Resolving]
  - Periodontitis [Recovering/Resolving]
  - Diarrhoea [Recovered/Resolved]
  - Dehydration [Recovered/Resolved]
  - Diarrhoea [Recovered/Resolved]
